FAERS Safety Report 14398549 (Version 1)
Quarter: 2018Q1

REPORT INFORMATION
  Report Type: Spontaneous
  Country: US (occurrence: US)
  Receive Date: 20180117
  Receipt Date: 20180117
  Transmission Date: 20180509
  Serious: Yes (Other)
  Sender: FDA-Public Use
  Company Number: US-CIPLA (EU) LIMITED-2018US00587

PATIENT

DRUGS (10)
  1. BEVACIZUMAB. [Suspect]
     Active Substance: BEVACIZUMAB
     Indication: METAPLASTIC BREAST CARCINOMA
     Dosage: UNK
     Route: 065
     Dates: start: 201512, end: 201602
  2. CARBOPLATIN. [Suspect]
     Active Substance: CARBOPLATIN
     Indication: METAPLASTIC BREAST CARCINOMA
     Dosage: UNK
     Route: 065
     Dates: start: 201603, end: 201605
  3. PACLITAXEL. [Suspect]
     Active Substance: PACLITAXEL
     Indication: METAPLASTIC BREAST CARCINOMA
     Dosage: 100 MG/M2, D1 AND 8
     Route: 042
     Dates: start: 201607
  4. CYCLOPHOSPHAMIDE. [Suspect]
     Active Substance: CYCLOPHOSPHAMIDE
     Indication: METAPLASTIC BREAST CARCINOMA
     Dosage: UNK
     Route: 065
  5. ADRIAMYCIN [Suspect]
     Active Substance: DOXORUBICIN HYDROCHLORIDE
     Indication: METAPLASTIC BREAST CARCINOMA
     Dosage: UNK
     Route: 065
  6. GEMCITABINE [Suspect]
     Active Substance: GEMCITABINE\GEMCITABINE HYDROCHLORIDE
     Indication: METAPLASTIC BREAST CARCINOMA
     Dosage: UNK
     Route: 065
     Dates: start: 201603, end: 201605
  7. DOXORUBICIN [Suspect]
     Active Substance: DOXORUBICIN
     Indication: METAPLASTIC BREAST CARCINOMA
     Dosage: UNK
     Route: 065
     Dates: start: 201512, end: 201602
  8. EVEROLIMUS. [Suspect]
     Active Substance: EVEROLIMUS
     Indication: METAPLASTIC BREAST CARCINOMA
     Dosage: UNK
     Route: 065
     Dates: start: 201512, end: 201602
  9. INTERLEUKIN-10 [Suspect]
     Active Substance: INTERLEUKIN-10
     Indication: METAPLASTIC BREAST CARCINOMA
     Dosage: UNK
     Route: 065
     Dates: start: 201603, end: 201605
  10. PEMBROLIZUMAB. [Suspect]
     Active Substance: PEMBROLIZUMAB
     Indication: METAPLASTIC BREAST CARCINOMA
     Dosage: 200 MG, D1 STARTING WITH CYCLE TWO
     Route: 042
     Dates: start: 201607

REACTIONS (5)
  - Metastasis [Recovering/Resolving]
  - Performance status decreased [Recovered/Resolved]
  - Malignant neoplasm progression [Recovering/Resolving]
  - Disease recurrence [Recovering/Resolving]
  - Hypercalcaemia of malignancy [Recovered/Resolved]
